FAERS Safety Report 15640493 (Version 5)
Quarter: 2019Q1

REPORT INFORMATION
  Report Type: Report from Study
  Country: CN (occurrence: CN)
  Receive Date: 20181120
  Receipt Date: 20190314
  Transmission Date: 20190417
  Serious: Yes (Hospitalization, Other)
  Sender: FDA-Public Use
  Company Number: PHHY2018CN148991

PATIENT
  Age: 34 Year
  Sex: Male
  Weight: 62 kg

DRUGS (29)
  1. TIGECYCLINE. [Concomitant]
     Active Substance: TIGECYCLINE
     Indication: ANTI-INFECTIVE THERAPY
     Dosage: 50 MG, Q12H
     Route: 042
     Dates: start: 20180802, end: 20181108
  2. NEXIUM [Concomitant]
     Active Substance: ESOMEPRAZOLE MAGNESIUM
     Indication: GASTRIC PH DECREASED
     Dosage: 40 MG, QD
     Route: 042
     Dates: start: 20180802, end: 20180805
  3. NEXIUM [Concomitant]
     Active Substance: ESOMEPRAZOLE MAGNESIUM
     Indication: PROPHYLAXIS
  4. HYDROTALCITE [Concomitant]
     Active Substance: HYDROTALCITE
     Indication: PROPHYLAXIS
  5. BICYCLOL [Concomitant]
     Active Substance: BICYCLOL
     Indication: ALANINE AMINOTRANSFERASE INCREASED
     Dosage: 25 MG, BID
     Route: 048
     Dates: start: 20181031, end: 20181103
  6. METOPROLOL. [Concomitant]
     Active Substance: METOPROLOL
     Dosage: 47.5 MG, QD
     Route: 048
     Dates: start: 20181018, end: 20181101
  7. MYFORTIC [Suspect]
     Active Substance: MYCOPHENOLATE SODIUM
     Dosage: 360 MG, BID
     Route: 048
     Dates: start: 20181004
  8. TIGECYCLINE. [Concomitant]
     Active Substance: TIGECYCLINE
     Dosage: 100 MG, Q12H
     Route: 042
     Dates: start: 20180802, end: 20180805
  9. CASPOFUNGIN ACETATE. [Concomitant]
     Active Substance: CASPOFUNGIN ACETATE
     Indication: ANTI-INFECTIVE THERAPY
     Dosage: 50 MG, QD
     Route: 042
     Dates: start: 20180802, end: 20180807
  10. HYDROTALCITE [Concomitant]
     Active Substance: HYDROTALCITE
     Indication: GASTRIC PH DECREASED
     Dosage: 1000 MG, BID
     Route: 048
     Dates: start: 20180802, end: 20180823
  11. TRAMADOL. [Concomitant]
     Active Substance: TRAMADOL
     Indication: ANALGESIC THERAPY
     Dosage: 100 MG, SOS
     Route: 048
     Dates: start: 20181101, end: 20181101
  12. BERAPROST SODIUM [Concomitant]
     Active Substance: BERAPROST SODIUM
     Indication: PAIN
  13. MYFORTIC [Suspect]
     Active Substance: MYCOPHENOLATE SODIUM
     Indication: RENAL TRANSPLANT
     Dosage: 1440 MG, QD
     Route: 065
     Dates: start: 20180801, end: 20180801
  14. SIMULECT [Suspect]
     Active Substance: BASILIXIMAB
     Dosage: 20 MG, QD
     Route: 042
     Dates: start: 20180805, end: 20180805
  15. METOPROLOL. [Concomitant]
     Active Substance: METOPROLOL
     Indication: HYPERTENSION
     Dosage: 47.5 MG, QD
     Route: 048
     Dates: start: 20180802, end: 20180820
  16. AMIKACIN. [Concomitant]
     Active Substance: AMIKACIN
     Indication: ANTI-INFECTIVE THERAPY
     Dosage: 200 MG, QD
     Route: 042
     Dates: start: 20180802, end: 20180807
  17. BERAPROST SODIUM [Concomitant]
     Active Substance: BERAPROST SODIUM
     Indication: NASOPHARYNGITIS
  18. MYFORTIC [Suspect]
     Active Substance: MYCOPHENOLATE SODIUM
     Indication: SURGICAL PRECONDITIONING
     Dosage: 1440 MG, QD
     Route: 048
     Dates: start: 20180802, end: 20180808
  19. MYFORTIC [Suspect]
     Active Substance: MYCOPHENOLATE SODIUM
     Dosage: 540 MG, BID
     Route: 048
     Dates: start: 20180809, end: 20180816
  20. SIMULECT [Suspect]
     Active Substance: BASILIXIMAB
     Indication: RENAL TRANSPLANT
     Dosage: 20 MG, QD
     Route: 042
     Dates: start: 20180801, end: 20180801
  21. TAMSULOSIN HYDROCHLORIDE. [Concomitant]
     Active Substance: TAMSULOSIN HYDROCHLORIDE
     Indication: URINARY TRACT DISORDER
  22. HUMAN FIBRINOGEN [Concomitant]
     Indication: ANTICOAGULANT THERAPY
     Dosage: 1 G, QD
     Route: 042
     Dates: start: 20181031, end: 20181102
  23. GANCICLOVIR. [Concomitant]
     Active Substance: GANCICLOVIR
     Indication: INFECTION
     Dosage: 500 MG, TID
     Route: 048
     Dates: start: 20180821, end: 20181101
  24. MEROPENEM. [Concomitant]
     Active Substance: MEROPENEM
     Indication: ANTI-INFECTIVE THERAPY
     Dosage: 1000 MG, Q8H
     Route: 042
     Dates: start: 20180802, end: 20180813
  25. TAMSULOSIN HYDROCHLORIDE. [Concomitant]
     Active Substance: TAMSULOSIN HYDROCHLORIDE
     Indication: BENIGN PROSTATIC HYPERPLASIA
     Dosage: 0.2 MG, QD
     Route: 048
     Dates: start: 20180804, end: 20180823
  26. DILTIAZEM. [Concomitant]
     Active Substance: DILTIAZEM
     Indication: PRODUCT USED FOR UNKNOWN INDICATION
     Dosage: 30 MG, BID
     Route: 048
     Dates: start: 20180802, end: 20180903
  27. BERAPROST SODIUM [Concomitant]
     Active Substance: BERAPROST SODIUM
     Indication: ULCER
     Dosage: 40 UG, TID
     Route: 048
     Dates: start: 20181018, end: 20181101
  28. BERAPROST SODIUM [Concomitant]
     Active Substance: BERAPROST SODIUM
     Indication: INTERMITTENT CLAUDICATION
  29. MYFORTIC [Suspect]
     Active Substance: MYCOPHENOLATE SODIUM
     Dosage: 360 MG, BID
     Route: 048
     Dates: start: 20180830

REACTIONS (5)
  - Renal tubular injury [Not Recovered/Not Resolved]
  - Blood creatinine increased [Not Recovered/Not Resolved]
  - Hypoproteinaemia [Recovered/Resolved]
  - Neutropenia [Unknown]
  - Leukopenia [Recovered/Resolved]

NARRATIVE: CASE EVENT DATE: 20180804
